FAERS Safety Report 5391966-4 (Version None)
Quarter: 2007Q3

REPORT INFORMATION
  Report Type: 
  Country: None (occurrence: None)
  Receive Date: 20070720
  Receipt Date: 20070713
  Transmission Date: 20080115
  Serious: Yes (Death, Other)
  Sender: FDA-Public Use
  Company Number: PHBS2007US12012

PATIENT
  Age: 42 Year
  Sex: Female

DRUGS (2)
  1. IMATINIB MESYLATE [Suspect]
     Indication: CHRONIC MYELOID LEUKAEMIA
     Dosage: 400 MG/D
     Route: 065
  2. IMATINIB MESYLATE [Suspect]
     Dosage: 800 MG/D
     Route: 065

REACTIONS (3)
  - ACUTE MYELOID LEUKAEMIA [None]
  - CHROMOSOME ANALYSIS ABNORMAL [None]
  - COMPLICATIONS OF BONE MARROW TRANSPLANT [None]
